FAERS Safety Report 5108849-7 (Version None)
Quarter: 2006Q3

REPORT INFORMATION
  Report Type: 
  Country: None (occurrence: None)
  Receive Date: 20060915
  Receipt Date: 20060915
  Transmission Date: 20061208
  Serious: Yes (Disabling)
  Sender: FDA-Public Use
  Company Number: None

PATIENT
  Age: 35 Year
  Sex: Female
  Weight: 69.8539 kg

DRUGS (2)
  1. TEGRETOL-XR [Suspect]
     Indication: CONVULSION
     Dosage: 600MG   TWICE DAILY  PO
     Route: 048
  2. LAMICTAL [Suspect]
     Indication: CONVULSION
     Dosage: 200MG   TWICE DAILY

REACTIONS (3)
  - NAUSEA [None]
  - NYSTAGMUS [None]
  - VOMITING [None]
